FAERS Safety Report 15832812 (Version 1)
Quarter: 2019Q1

REPORT INFORMATION
  Report Type: Spontaneous
  Country: US (occurrence: US)
  Receive Date: 20190115
  Receipt Date: 20190115
  Transmission Date: 20190417
  Serious: Yes (Death)
  Sender: FDA-Public Use
  Company Number: None

PATIENT
  Age: 63 Year
  Sex: Male

DRUGS (1)
  1. HUMIRA [Suspect]
     Active Substance: ADALIMUMAB
     Indication: PSORIASIS
     Dosage: 40MG/0.4ML EOW SUBCUTANEOUS
     Route: 058
     Dates: start: 20171017, end: 201812

REACTIONS (1)
  - Death [None]

NARRATIVE: CASE EVENT DATE: 20190103
